FAERS Safety Report 7134589-9 (Version None)
Quarter: 2010Q4

REPORT INFORMATION
  Report Type: 
  Country: None (occurrence: None)
  Receive Date: 20101203
  Receipt Date: 20101122
  Transmission Date: 20110411
  Serious: Yes (Other)
  Sender: FDA-Public Use
  Company Number: PHHY2010FR79701

PATIENT
  Age: 69 Year
  Sex: Female

DRUGS (7)
  1. FEMARA [Suspect]
     Indication: BREAST CANCER
     Dosage: UNK
     Route: 048
     Dates: start: 20090101, end: 20101011
  2. PROZAC [Concomitant]
     Dosage: UNK
     Route: 048
  3. TENORMIN [Concomitant]
     Dosage: UNK
     Route: 048
  4. COOLMETEC [Concomitant]
     Dosage: UNK
     Route: 048
  5. GAVISCON [Concomitant]
     Dosage: UNK
     Route: 048
  6. DOLIPRANE [Concomitant]
     Dosage: UNK
     Route: 048
  7. XALATAN [Concomitant]
     Indication: GLAUCOMA
     Dosage: UNK
     Route: 048

REACTIONS (2)
  - OPTIC NEURITIS [None]
  - VISUAL FIELD TESTS ABNORMAL [None]
